FAERS Safety Report 11984165 (Version 1)
Quarter: 2016Q1

REPORT INFORMATION
  Report Type: Other
  Country: CA (occurrence: CA)
  Receive Date: 20160201
  Receipt Date: 20160201
  Transmission Date: 20160526
  Serious: Yes (Other)
  Sender: FDA-Public Use
  Company Number: CA-WARNER CHILCOTT, LLC-1047160

PATIENT
  Age: 33 Year
  Sex: Female

DRUGS (14)
  1. BUSCOPAN [Suspect]
     Active Substance: BUTYLSCOPOLAMINE BROMIDE
     Route: 065
  2. SALOFALK [Suspect]
     Active Substance: MESALAMINE
     Route: 065
  3. CALCIUM [Concomitant]
     Active Substance: CALCIUM
     Route: 065
  4. IRON [Concomitant]
     Active Substance: IRON
     Route: 065
  5. PANTOPRAZOLE [Suspect]
     Active Substance: PANTOPRAZOLE SODIUM
     Route: 065
  6. VITAMIN D [Concomitant]
     Active Substance: CHOLECALCIFEROL
     Route: 065
  7. CENTRUM [Suspect]
     Active Substance: VITAMINS
     Route: 065
  8. IMURAN [Suspect]
     Active Substance: AZATHIOPRINE
     Route: 065
  9. TECTA [Suspect]
     Active Substance: PANTOPRAZOLE MAGNESIUM
     Route: 065
  10. ASACOL HD [Suspect]
     Active Substance: MESALAMINE
     Route: 065
  11. CORTIFOAM [Suspect]
     Active Substance: HYDROCORTISONE ACETATE
     Route: 065
  12. FRAGMIN [Suspect]
     Active Substance: DALTEPARIN SODIUM
     Route: 065
  13. REMICADE [Suspect]
     Active Substance: INFLIXIMAB
     Route: 042
  14. REMICADE [Suspect]
     Active Substance: INFLIXIMAB
     Route: 041

REACTIONS (10)
  - Arthropod bite [Unknown]
  - Swelling [Unknown]
  - Pain [Unknown]
  - Subcutaneous abscess [Unknown]
  - Rash [Unknown]
  - Exposure during pregnancy [Unknown]
  - Skin warm [Unknown]
  - Abdominal pain upper [Unknown]
  - Purulent discharge [Unknown]
  - Joint swelling [Unknown]
